FAERS Safety Report 7949141-2 (Version None)
Quarter: 2011Q4

REPORT INFORMATION
  Report Type: 
  Country: None (occurrence: None)
  Receive Date: 20111123
  Receipt Date: 20111115
  Transmission Date: 20120403
  Serious: Yes (Hospitalization, Other)
  Sender: FDA-Public Use
  Company Number: ACO_27246_2011

PATIENT
  Age: 77 Year
  Sex: Female
  Weight: 52.2 kg

DRUGS (9)
  1. DITROPAN [Concomitant]
  2. MULTIVITAMIN /00831701/ (VITAMINS NOS) [Concomitant]
  3. VITAMIN D NOS (VITAMIN D NOS) [Concomitant]
  4. IMURAN [Concomitant]
  5. VITAMIN C /00008001/ (ASCORBIC ACID) [Concomitant]
  6. ASPIRIN [Concomitant]
  7. AMPYRA [Suspect]
     Indication: GAIT DISTURBANCE
     Dosage: 10 MG, BID, ORAL
     Route: 048
     Dates: start: 20100501, end: 20111008
  8. CALCIUM CARBONATE [Concomitant]
  9. FISH OIL (FISH OIL) [Concomitant]

REACTIONS (3)
  - LOSS OF CONSCIOUSNESS [None]
  - CONVULSION [None]
  - TREMOR [None]
